FAERS Safety Report 4175225 (Version 7)
Quarter: 2012Q4

REPORT INFORMATION
  Report Type: Report from Study
  Country: CH (occurrence: US)
  Receive Date: 20040723
  Receipt Date: 20121127
  Transmission Date: 20130627
  Serious: Yes (Hospitalization, Congenital Anomaly, Other)
  Sender: FDA-Public Use
  Company Number: US-BRISTOL-MYERS SQUIBB COMPANY-12645404

PATIENT
  Age: 1 Day
  Sex: Male
  Weight: 4.15 kg

DRUGS (6)
  1. SUSTIVA [Suspect]
     Dosage: Ongoing at conception.  Exposure to week 17 of gestation.
     Route: 064
     Dates: end: 20040313
  2. VIREAD [Suspect]
     Dosage: Ongoing at conception to delivery.
     Route: 064
     Dates: end: 20040729
  3. EPIVIR [Suspect]
     Dosage: Ongoing at conception.  Exposure to week 11 of gestation.
     Route: 064
     Dates: end: 20040219
  4. VIRAMUNE [Suspect]
     Dosage: Exposure periconceptional to delivery.
     Route: 064
     Dates: start: 20031219, end: 20040729
  5. COMBIVIR [Suspect]
     Route: 064
     Dates: start: 20040220, end: 20040729
  6. ZIDOVUDINE [Suspect]
     Route: 064

REACTIONS (2)
  - Meningomyelocele [Unknown]
  - Arnold-Chiari malformation [Unknown]
